FAERS Safety Report 4379986-X (Version None)
Quarter: 2004Q2

REPORT INFORMATION
  Report Type: 
  Country: None (occurrence: None)
  Receive Date: 20040614
  Receipt Date: 20040527
  Transmission Date: 20050107
  Serious: Yes (Death)
  Sender: FDA-Public Use
  Company Number: 2004IM000658

PATIENT
  Age: 62 Year
  Sex: Male

DRUGS (4)
  1. ADVAFERON (A643_INTERFERON ALFACON-1) [Suspect]
     Indication: HEPATITIS C
     Dosage: 12 MU; QD; SUBCUTANEOUS
     Route: 058
     Dates: start: 20040311, end: 20040503
  2. VALSARTAN [Concomitant]
  3. ALLOPURINOL [Concomitant]
  4. MEFRUSIDE [Concomitant]

REACTIONS (6)
  - CEREBRAL HAEMORRHAGE [None]
  - CONVULSION [None]
  - DEPRESSED LEVEL OF CONSCIOUSNESS [None]
  - MUSCULOSKELETAL STIFFNESS [None]
  - MYDRIASIS [None]
  - PUPILLARY REFLEX IMPAIRED [None]
